FAERS Safety Report 6714059-X (Version None)
Quarter: 2010Q2

REPORT INFORMATION
  Report Type: 
  Country: None (occurrence: None)
  Receive Date: 20100504
  Receipt Date: 20100420
  Transmission Date: 20101027
  Serious: Yes (Hospitalization)
  Sender: FDA-Public Use
  Company Number: 2010-1243

PATIENT
  Age: 68 Year
  Sex: Female

DRUGS (7)
  1. APO-GO AMPOULES             (APO-GO) (APOMORPHINE HYDROCHLORIDE) [Suspect]
     Indication: PARKINSON'S DISEASE
     Dosage: 3.5 MG/HOUR/14 HOURS A DAY (CONTINUOUS FOR 14 HOURS A DAY), SUBCUTANEOUS
     Route: 058
     Dates: start: 20100302
  2. QUETIAPINE (QUETIAPINE) [Concomitant]
  3. LEVODOPA W/BENSERAZIDE (LEVODOPA W/BENSERAZIDE/) [Concomitant]
  4. AMANTADINE (LEVODOPA W/BENSERAZIDE/) [Concomitant]
  5. TOLCAPONE (TOLCAPONE) [Concomitant]
  6. LORAZEPAM [Concomitant]
  7. AKINETON 9BIPERIDEN HYDROCHLORIDE) [Concomitant]

REACTIONS (9)
  - AGITATION [None]
  - CLONUS [None]
  - CRYING [None]
  - DIARRHOEA [None]
  - GENERAL PHYSICAL HEALTH DETERIORATION [None]
  - INFLAMMATION [None]
  - MUSCLE RIGIDITY [None]
  - NAUSEA [None]
  - VOMITING [None]
